FAERS Safety Report 8224125-8 (Version None)
Quarter: 2012Q1

REPORT INFORMATION
  Report Type: 
  Country: None (occurrence: None)
  Receive Date: 20120307
  Receipt Date: 20110427
  Transmission Date: 20120608
  Serious: No
  Sender: FDA-Public Use
  Company Number: PHHY2011US38642

PATIENT
  Age: 17 Year
  Sex: Female

DRUGS (7)
  1. AFINITOR [Suspect]
     Indication: TUBEROUS SCLEROSIS
     Dosage: 10 MG, DAILY, ORAL
     Route: 048
     Dates: start: 20110131
  2. AFINITOR [Suspect]
     Indication: ASTROCYTOMA
     Dosage: 10 MG, DAILY, ORAL
     Route: 048
     Dates: start: 20110131
  3. PRILOSEC [Concomitant]
  4. SABRIL [Concomitant]
  5. TOPAMAX [Concomitant]
  6. KEPPRA [Concomitant]
  7. KLONOPIN [Concomitant]

REACTIONS (2)
  - PAIN [None]
  - INTENTIONAL SELF-INJURY [None]
